FAERS Safety Report 9852351 (Version 1)
Quarter: 2014Q1

REPORT INFORMATION
  Report Type: Spontaneous
  Country: US (occurrence: None)
  Receive Date: 20140127
  Receipt Date: 20140127
  Transmission Date: 20141002
  Serious: Yes (Other)
  Sender: FDA-Public Use
  Company Number: 2014AP000751

PATIENT
  Age: 58 Year
  Sex: Male
  Weight: 57 kg

DRUGS (4)
  1. FERRIPROX [Suspect]
     Indication: IRON METABOLISM DISORDER
     Dosage: 35 MG/KG;QD;PO
     Route: 048
     Dates: start: 20120212, end: 20131214
  2. SYNTHROID [Concomitant]
  3. FINASTERIDE [Concomitant]
  4. TAMSULOSIN [Suspect]

REACTIONS (4)
  - Neutropenia [None]
  - Nasopharyngitis [None]
  - Oropharyngeal pain [None]
  - Sneezing [None]
